FAERS Safety Report 12202696 (Version 1)
Quarter: 2016Q1

REPORT INFORMATION
  Report Type: Report from Study
  Country: US (occurrence: US)
  Receive Date: 20160322
  Receipt Date: 20160322
  Transmission Date: 20160526
  Serious: Yes (Other)
  Sender: FDA-Public Use
  Company Number: US-ABBVIE-16K-163-1555447-00

PATIENT
  Age: 22 Year
  Sex: Female

DRUGS (1)
  1. HUMIRA [Suspect]
     Active Substance: ADALIMUMAB
     Indication: COLITIS ULCERATIVE
     Route: 058
     Dates: start: 20151108

REACTIONS (4)
  - Colectomy [Recovering/Resolving]
  - Drug ineffective [Not Recovered/Not Resolved]
  - Colitis ulcerative [Unknown]
  - Post procedural complication [Unknown]

NARRATIVE: CASE EVENT DATE: 20160308
